FAERS Safety Report 4796394-8 (Version None)
Quarter: 2005Q4

REPORT INFORMATION
  Report Type: 
  Country: None (occurrence: None)
  Receive Date: 20051006
  Receipt Date: 20051006
  Transmission Date: 20060501
  Serious: Yes (Hospitalization, Other)
  Sender: FDA-Public Use
  Company Number: None

PATIENT
  Sex: Male
  Weight: 89.1 kg

DRUGS (15)
  1. RITUXIMAB [Suspect]
     Indication: MANTLE CELL LYMPHOMA
     Dosage: SEE IMAGE
     Route: 042
     Dates: start: 20050815, end: 20050815
  2. MESNA [Suspect]
     Dosage: SEE IMAGE
     Route: 042
  3. CYCLOPHOSPHAMIDE [Suspect]
     Dosage: SEE IMAGE
     Route: 042
  4. DOXORUBICIN HCL [Suspect]
     Dosage: SEE IMAGE
     Route: 042
  5. VINCRISTINE [Suspect]
     Dosage: SEE IMAGE
     Route: 042
  6. DEXAMETHASONE [Suspect]
     Dosage: SEE IMAGE
     Route: 042
  7. G-CSF [Suspect]
     Dosage: SEE IMAGE
     Route: 058
     Dates: start: 20050820, end: 20050829
  8. METHOTREXATE [Suspect]
     Dosage: SEE IMAGE
     Route: 042
     Dates: start: 20050816, end: 20050816
  9. RITUXIMAB [Suspect]
     Dosage: SEE IMAGE
     Route: 042
     Dates: start: 20050815, end: 20050815
  10. METHOTREXATE [Suspect]
     Dosage: SEE IMAGE
     Route: 042
     Dates: start: 20050816, end: 20050816
  11. METHOTREXATE [Suspect]
     Dosage: SEE IMAGE
     Route: 042
     Dates: start: 20050816, end: 20050816
  12. ARA C [Suspect]
     Dosage: SEE IMAGE
     Dates: start: 20050817, end: 20050819
  13. LEUCOVORIN [Suspect]
     Dosage: SEE IMAGE
     Route: 048
     Dates: start: 20050818, end: 20050819
  14. LEUCOVORIN [Suspect]
     Dosage: SEE IMAGE
     Route: 048
     Dates: start: 20050818, end: 20050819
  15. G-CSF [Suspect]
     Dosage: SEE IMAGE
     Route: 058
     Dates: start: 20050820, end: 20050829

REACTIONS (10)
  - ASTHENIA [None]
  - CHILLS [None]
  - FEBRILE NEUTROPENIA [None]
  - HYPOKALAEMIA [None]
  - HYPOTENSION [None]
  - HYPOXIA [None]
  - INFECTION [None]
  - OXYGEN SATURATION DECREASED [None]
  - PAIN [None]
  - SEPTIC SHOCK [None]
